FAERS Safety Report 8317332-7 (Version None)
Quarter: 2012Q2

REPORT INFORMATION
  Report Type: 
  Country: None (occurrence: None)
  Receive Date: 20120427
  Receipt Date: 20120419
  Transmission Date: 20120825
  Serious: Yes (Hospitalization)
  Sender: FDA-Public Use
  Company Number: CA-ASTELLAS-2012US004081

PATIENT
  Sex: Female

DRUGS (3)
  1. PROGRAF [Suspect]
     Indication: TRANSPLANT
     Dosage: UNK
     Route: 065
  2. ANTIBIOTICS [Concomitant]
     Indication: PRODUCT USED FOR UNKNOWN INDICATION
     Dosage: UNK
     Route: 065
  3. PLATELET AGGREGATION INHIBITORS [Concomitant]
     Indication: PRODUCT USED FOR UNKNOWN INDICATION
     Dosage: UNK
     Route: 065

REACTIONS (1)
  - DRUG INTERACTION [None]
